FAERS Safety Report 17375488 (Version 3)
Quarter: 2020Q2

REPORT INFORMATION
  Report Type: Spontaneous
  Country: US (occurrence: US)
  Receive Date: 20200206
  Receipt Date: 20200427
  Transmission Date: 20200713
  Serious: No
  Sender: FDA-Public Use
  Company Number: US-BIOGEN-2018BI00612002

PATIENT
  Sex: Female

DRUGS (2)
  1. PLEGRIDY [Suspect]
     Active Substance: PEGINTERFERON BETA-1A
     Route: 058
  2. PLEGRIDY [Suspect]
     Active Substance: PEGINTERFERON BETA-1A
     Indication: MULTIPLE SCLEROSIS
     Route: 058
     Dates: start: 20160811, end: 20190131

REACTIONS (11)
  - Bursitis [Not Recovered/Not Resolved]
  - Dysgraphia [Unknown]
  - Sciatica [Not Recovered/Not Resolved]
  - Memory impairment [Unknown]
  - Intervertebral disc protrusion [Unknown]
  - Central nervous system lesion [Unknown]
  - Peripheral swelling [Recovered/Resolved]
  - Rash macular [Unknown]
  - Burning sensation [Recovered/Resolved]
  - Hypoaesthesia [Recovered/Resolved]
  - Mental disorder [Recovered/Resolved]
